FAERS Safety Report 5413563-4 (Version None)
Quarter: 2007Q3

REPORT INFORMATION
  Report Type: 
  Country: None (occurrence: None)
  Receive Date: 20070810
  Receipt Date: 20070717
  Transmission Date: 20080115
  Serious: Yes (Hospitalization)
  Sender: FDA-Public Use
  Company Number: 2007VX001394

PATIENT
  Age: 56 Year
  Sex: Male
  Weight: 105.6881 kg

DRUGS (3)
  1. INFERGEN [Suspect]
     Indication: HEPATITIS C
     Dosage: 15 UG; QD; SC
     Route: 058
     Dates: start: 20061214, end: 20070618
  2. RIBAVIRIN [Suspect]
     Indication: HEPATITIS C
     Dosage: 600 MG; QAM; PO ; 800 MG; QPM; PO
     Route: 048
     Dates: start: 20061214, end: 20070618
  3. RIBAVIRIN [Suspect]
     Indication: HEPATITIS C
     Dosage: 600 MG; QAM; PO ; 800 MG; QPM; PO
     Route: 048
     Dates: start: 20061214, end: 20070618

REACTIONS (1)
  - DIVERTICULITIS [None]
